FAERS Safety Report 4280429-5 (Version None)
Quarter: 2004Q1

REPORT INFORMATION
  Report Type: 
  Country: None (occurrence: None)
  Receive Date: 20040126
  Receipt Date: 20040114
  Transmission Date: 20041129
  Serious: Yes (Hospitalization)
  Sender: FDA-Public Use
  Company Number: 03P-163-0237020-00

PATIENT
  Age: 69 Year
  Sex: Male
  Weight: 88 kg

DRUGS (20)
  1. VICODIN [Suspect]
     Indication: PAIN
     Dosage: 5 MG, AS REQUIRED PER ORAL
     Route: 048
     Dates: start: 20030624, end: 20030630
  2. NEUTRALASE [Suspect]
     Dosage: 4320 MCG, INTRAVENOUS
     Route: 042
     Dates: start: 20030623, end: 20030623
  3. ZOLPIDEM TARTRATE [Suspect]
     Indication: INSOMNIA
     Dosage: 5 MG, 1 IN 1 D, PER ORAL
     Route: 048
     Dates: end: 20030629
  4. METFORMIN HYDROCHLORIDE [Concomitant]
  5. SIMVASTATIN [Concomitant]
  6. METOPROLOL [Concomitant]
  7. ACETYLSALICYLIC ACID SRT [Concomitant]
  8. FAMOTIDINE [Concomitant]
  9. VANCOMYCIN [Concomitant]
  10. PANTOPRAZOLE [Concomitant]
  11. DEXTROPROPOXYPHENE NAPSILATE + PARACETAMOL [Concomitant]
  12. GLIPIZIDE [Concomitant]
  13. CELECOXIB [Concomitant]
  14. CLOPIDOGREL BISULFATE [Concomitant]
  15. PREDNISONE [Concomitant]
  16. FUROSEMIDE [Concomitant]
  17. MIRTAZAPINE [Concomitant]
  18. BENZONATATE [Concomitant]
  19. LEVLFLOXACIN [Concomitant]
  20. LISINOPRIL [Concomitant]

REACTIONS (8)
  - BLOODY DISCHARGE [None]
  - CHILLS [None]
  - CONFUSIONAL STATE [None]
  - INSOMNIA [None]
  - PAIN [None]
  - POST PROCEDURAL DISCHARGE [None]
  - PURULENT DISCHARGE [None]
  - PYREXIA [None]
